FAERS Safety Report 17106542 (Version 5)
Quarter: 2023Q2

REPORT INFORMATION
  Report Type: Spontaneous
  Country: US (occurrence: US)
  Receive Date: 20191203
  Receipt Date: 20230406
  Transmission Date: 20230722
  Serious: No
  Sender: FDA-Public Use
  Company Number: US-PFIZER INC-2019519816

PATIENT
  Age: 52 Year
  Sex: Female

DRUGS (4)
  1. DOCETAXEL [Suspect]
     Active Substance: DOCETAXEL
     Indication: Breast cancer female
     Dosage: 156 MG, CYCLIC (06 CYCLES, EVERY THREE WEEKS)
     Dates: start: 20150505, end: 20150825
  2. DOCETAXEL [Suspect]
     Active Substance: DOCETAXEL
     Indication: Breast cancer female
     Dosage: 156 MG, CYCLIC (06 CYCLES, EVERY THREE WEEKS)
     Dates: start: 20150505, end: 20150825
  3. PARAPLATIN [Concomitant]
     Active Substance: CARBOPLATIN
     Indication: Chemotherapy
     Dosage: UNK
  4. TAXOTERE [Concomitant]
     Active Substance: DOCETAXEL
     Indication: Chemotherapy
     Dosage: UNK

REACTIONS (5)
  - Alopecia [Not Recovered/Not Resolved]
  - Hair texture abnormal [Not Recovered/Not Resolved]
  - Hair colour changes [Not Recovered/Not Resolved]
  - Hair disorder [Not Recovered/Not Resolved]
  - Madarosis [Not Recovered/Not Resolved]

NARRATIVE: CASE EVENT DATE: 20150901
